FAERS Safety Report 7444777-X (Version None)
Quarter: 2011Q2

REPORT INFORMATION
  Report Type: 
  Country: None (occurrence: None)
  Receive Date: 20110427
  Receipt Date: 20110427
  Transmission Date: 20111010
  Serious: Yes (Hospitalization)
  Sender: FDA-Public Use
  Company Number: None

PATIENT
  Age: 89 Year
  Sex: Male
  Weight: 74.35 kg

DRUGS (2)
  1. NAPROXEN [Suspect]
     Dosage: 220 MG EVERY DAY PO
     Route: 048
     Dates: start: 20101101, end: 20101104
  2. ASPIRIN [Suspect]
     Dosage: 81 MG EVERY DAY PO
     Route: 048
     Dates: start: 20101101, end: 20101104

REACTIONS (4)
  - HAEMORRHAGE [None]
  - DIARRHOEA [None]
  - ABDOMINAL PAIN [None]
  - GASTROINTESTINAL HAEMORRHAGE [None]
